FAERS Safety Report 10006851 (Version 1)
Quarter: 2014Q1

REPORT INFORMATION
  Report Type: Spontaneous
  Country: US (occurrence: None)
  Receive Date: 20140312
  Receipt Date: 20140312
  Transmission Date: 20141002
  Serious: Yes (Disabling)
  Sender: FDA-Public Use
  Company Number: None

PATIENT
  Age: 67 Year
  Sex: Female
  Weight: 63.5 kg

DRUGS (7)
  1. CARBIDOPA /LEVODOPA [Suspect]
     Indication: PARKINSON^S DISEASE
     Route: 048
     Dates: start: 20140129, end: 20140211
  2. CARBIDOPA LEVODOPA [Concomitant]
  3. SINEMET [Concomitant]
  4. RESTASIS EYE DROPS [Concomitant]
  5. VITAMIN D [Concomitant]
  6. COQ10 [Concomitant]
  7. OMEGA 3 KRILL [Concomitant]

REACTIONS (4)
  - Dizziness [None]
  - Fatigue [None]
  - Asthenia [None]
  - Product quality issue [None]
